FAERS Safety Report 6636541-6 (Version None)
Quarter: 2010Q1

REPORT INFORMATION
  Report Type: 
  Country: None (occurrence: None)
  Receive Date: 20100311
  Receipt Date: 20100305
  Transmission Date: 20100710
  Serious: Yes (Death)
  Sender: FDA-Public Use
  Company Number: CR10-0076

PATIENT
  Sex: Female

DRUGS (3)
  1. PRIMATENE MIST [Suspect]
  2. NEBULIZED ALBUTERAL INHALATION [Concomitant]
  3. VALIUM [Concomitant]

REACTIONS (4)
  - CHEST DISCOMFORT [None]
  - FIBRIN D DIMER INCREASED [None]
  - HEART RATE DECREASED [None]
  - PULMONARY THROMBOSIS [None]
